FAERS Safety Report 8346349-1 (Version None)
Quarter: 2012Q2

REPORT INFORMATION
  Report Type: 
  Country: None (occurrence: None)
  Receive Date: 20120509
  Receipt Date: 20120504
  Transmission Date: 20120825
  Serious: Yes (Hospitalization, Other)
  Sender: FDA-Public Use
  Company Number: US-PFIZER INC-2012027525

PATIENT
  Sex: Female
  Weight: 63.492 kg

DRUGS (4)
  1. NICOTROL [Suspect]
     Dosage: UNK
  2. NICOTROL [Suspect]
     Indication: SMOKING CESSATION THERAPY
     Dosage: UNK
     Dates: start: 20120122
  3. NICOTROL [Suspect]
     Dosage: UNKNOWN DOSE THREE TIMES A DAY
  4. NICOTROL [Suspect]
     Dosage: UNKNOWN DOSE 20 TIMES A DAY

REACTIONS (6)
  - CEREBROVASCULAR ACCIDENT [None]
  - TOOTH EXTRACTION [None]
  - MEMORY IMPAIRMENT [None]
  - ANXIETY [None]
  - EMOTIONAL DISORDER [None]
  - MALAISE [None]
